FAERS Safety Report 25241796 (Version 7)
Quarter: 2025Q4

REPORT INFORMATION
  Report Type: Report from Study
  Country: BR (occurrence: BR)
  Receive Date: 20250426
  Receipt Date: 20251006
  Transmission Date: 20260117
  Serious: Yes (Hospitalization, Other)
  Sender: AMGEN
  Company Number: BR-AMGEN-BRASL2024226681

PATIENT
  Age: 45 Year
  Sex: Female

DRUGS (5)
  1. VECTIBIX [Suspect]
     Active Substance: PANITUMUMAB
     Indication: Colorectal cancer metastatic
     Dosage: UNK, EVERY 15 DAYS
     Route: 040
     Dates: start: 202410, end: 2024
  2. VECTIBIX [Suspect]
     Active Substance: PANITUMUMAB
     Dosage: UNK EVERY 15 DAYS (SHE WILL RESUME THE INFUSIONS)
     Route: 040
     Dates: start: 20250226, end: 2025
  3. VECTIBIX [Suspect]
     Active Substance: PANITUMUMAB
     Dosage: UNK EVERY 15 DAYS
     Route: 040
     Dates: start: 20250529, end: 202508
  4. MORPHINE [Concomitant]
     Active Substance: MORPHINE
     Indication: Pain
     Dosage: 10 MILLIGRAM, Q4H
     Route: 048
  5. CAPECITABINE [Concomitant]
     Active Substance: CAPECITABINE
     Dosage: 500 MILLIGRAM, BID (4 TABLETS IN THE MORNING AND 3 TABLETS AT NIGHT)
     Route: 065

REACTIONS (37)
  - Urinary tract infection [Recovering/Resolving]
  - Colostomy bag user [Recovering/Resolving]
  - Hepatic neoplasm [Recovering/Resolving]
  - Lung neoplasm malignant [Recovering/Resolving]
  - Hernia [Recovering/Resolving]
  - Erythema of eyelid [Recovering/Resolving]
  - Toothache [Recovering/Resolving]
  - Pain in jaw [Recovering/Resolving]
  - Papule [Not Recovered/Not Resolved]
  - Skin wound [Recovering/Resolving]
  - Photosensitivity reaction [Not Recovered/Not Resolved]
  - Pain of skin [Recovering/Resolving]
  - Lacrimation increased [Recovering/Resolving]
  - Skin lesion [Recovering/Resolving]
  - Back pain [Recovering/Resolving]
  - Pain [Recovering/Resolving]
  - Erythema [Recovering/Resolving]
  - Nausea [Recovering/Resolving]
  - Diarrhoea [Recovering/Resolving]
  - Weight decreased [Recovering/Resolving]
  - Pruritus [Recovering/Resolving]
  - Eye irritation [Recovering/Resolving]
  - Dry skin [Recovering/Resolving]
  - Skin exfoliation [Not Recovered/Not Resolved]
  - Pustule [Recovering/Resolving]
  - Eyelid margin crusting [Recovering/Resolving]
  - Ageusia [Recovering/Resolving]
  - Influenza [Recovering/Resolving]
  - Skin laceration [Recovering/Resolving]
  - Vision blurred [Recovering/Resolving]
  - Eructation [Recovering/Resolving]
  - Skin burning sensation [Recovering/Resolving]
  - Pyrexia [Not Recovered/Not Resolved]
  - Lip dry [Recovering/Resolving]
  - Skin abrasion [Recovering/Resolving]
  - Skin fissures [Recovering/Resolving]
  - Drug effect less than expected [Recovering/Resolving]

NARRATIVE: CASE EVENT DATE: 20240101
